FAERS Safety Report 9417793 (Version 1)
Quarter: 2013Q3

REPORT INFORMATION
  Report Type: Spontaneous
  Country: FR (occurrence: FR)
  Receive Date: 20130724
  Receipt Date: 20130724
  Transmission Date: 20140515
  Serious: Yes (Hospitalization)
  Sender: FDA-Public Use
  Company Number: FR-GLAXOSMITHKLINE-B0909578A

PATIENT
  Age: 12 Year
  Sex: Female

DRUGS (5)
  1. ZOVIRAX [Suspect]
     Indication: HERPES SIMPLEX MENINGOENCEPHALITIS
     Dosage: 500MG THREE TIMES PER DAY
     Route: 042
     Dates: start: 20130620, end: 20130621
  2. VOGALENE [Concomitant]
     Route: 042
     Dates: start: 20130620, end: 20130626
  3. SPASFON [Concomitant]
     Route: 042
     Dates: start: 20130620, end: 20130626
  4. PARACETAMOL [Concomitant]
     Route: 042
     Dates: start: 20130620, end: 20130701
  5. NUBAIN [Concomitant]
     Route: 042
     Dates: start: 20130621, end: 20130621

REACTIONS (3)
  - Renal failure acute [Recovering/Resolving]
  - Anuria [Recovering/Resolving]
  - Blood creatinine increased [Recovered/Resolved]
